FAERS Safety Report 19873722 (Version 6)
Quarter: 2025Q3

REPORT INFORMATION
  Report Type: Spontaneous
  Country: EU (occurrence: EU)
  Receive Date: 20210922
  Receipt Date: 20250911
  Transmission Date: 20251020
  Serious: Yes (Hospitalization, Other)
  Sender: MYLAN
  Company Number: EU-ORION CORPORATION ORION PHARMA-SERT2021-0003

PATIENT
  Age: 76 Year
  Sex: Female

DRUGS (128)
  1. VENLAFAXINE [Suspect]
     Active Substance: VENLAFAXINE HYDROCHLORIDE
     Indication: Product used for unknown indication
  2. VENLAFAXINE [Suspect]
     Active Substance: VENLAFAXINE HYDROCHLORIDE
  3. FENTANYL [Suspect]
     Active Substance: FENTANYL
     Indication: Spinal muscular atrophy
  4. FENTANYL [Suspect]
     Active Substance: FENTANYL
     Indication: Back pain
     Dosage: 14400 MICROGRAM, QD (14400 MICROGRAM, DAILY)
  5. FENTANYL [Suspect]
     Active Substance: FENTANYL
  6. FENTANYL [Suspect]
     Active Substance: FENTANYL
  7. FENTANYL [Suspect]
     Active Substance: FENTANYL
     Indication: Pain
     Dosage: 150 MICROGRAM, QH (1 PATCH EVERY 72 HOURS.)
  8. FENTANYL [Suspect]
     Active Substance: FENTANYL
     Dosage: 400 MICROGRAM (4 PATCHES OF 100 ?G / H EVERY 72 HOURS)
  9. FENTANYL [Suspect]
     Active Substance: FENTANYL
  10. FENTANYL [Suspect]
     Active Substance: FENTANYL
     Dosage: 4 DOSAGE FORM, Q3D
  11. FENTANYL [Suspect]
     Active Substance: FENTANYL
     Dosage: 3000 MICROGRAM, QD
  12. FENTANYL [Suspect]
     Active Substance: FENTANYL
  13. FENTANYL [Suspect]
     Active Substance: FENTANYL
  14. FENTANYL [Suspect]
     Active Substance: FENTANYL
     Dosage: 400 MICROGRAM, Q2H
  15. FENTANYL [Suspect]
     Active Substance: FENTANYL
  16. FENTANYL [Suspect]
     Active Substance: FENTANYL
  17. FENTANYL [Suspect]
     Active Substance: FENTANYL
  18. PREGABALIN [Suspect]
     Active Substance: PREGABALIN
     Indication: Pain
     Dosage: 75 MG IN THE MORNING AND 75 MG IN THE EVENING
  19. PREGABALIN [Suspect]
     Active Substance: PREGABALIN
     Dosage: 150 MILLIGRAM, BID
  20. PREGABALIN [Suspect]
     Active Substance: PREGABALIN
     Dosage: 300 MILLIGRAM, QD (75 MG IN THE MORNING AND 75 MG IN THE EVENING)
  21. PREGABALIN [Suspect]
     Active Substance: PREGABALIN
     Dosage: 150 MILLIGRAM, QD (75 MG IN THE MORNING AND 75 MG IN THE EVENING)
  22. PREGABALIN [Suspect]
     Active Substance: PREGABALIN
     Dosage: 150 MICROGRAM, BID
  23. PREGABALIN [Suspect]
     Active Substance: PREGABALIN
     Dosage: 75 MICROGRAM, BID
  24. SERTRALINE [Suspect]
     Active Substance: SERTRALINE HYDROCHLORIDE
     Indication: Mixed anxiety and depressive disorder
  25. PREGABALIN [Suspect]
     Active Substance: PREGABALIN
     Indication: Pain
     Dosage: 300 MICROGRAM, QD (150 MICROGRAM, TWO TIMES A DAY )
  26. PREGABALIN [Suspect]
     Active Substance: PREGABALIN
     Dosage: 150 MICROGRAM, QD (75 MICROGRAM, TWO TIMES A DAY)
  27. QUETIAPINE [Suspect]
     Active Substance: QUETIAPINE
     Indication: Product used for unknown indication
     Dosage: 25 MILLIGRAM, QD  (25 MILLIGRAM, ONCE A DAY PER NIGHT )
  28. TAPENTADOL [Suspect]
     Active Substance: TAPENTADOL
     Indication: Back pain
  29. TAPENTADOL [Suspect]
     Active Substance: TAPENTADOL
     Indication: Pain
  30. TAPENTADOL [Suspect]
     Active Substance: TAPENTADOL
     Indication: Myalgia
  31. FENTANYL CITRATE [Suspect]
     Active Substance: FENTANYL CITRATE
     Indication: Myalgia
  32. FENTANYL CITRATE [Suspect]
     Active Substance: FENTANYL CITRATE
     Indication: Pain
     Dosage: 5 DOSAGE FORM, QD (STRENGTH: 400 ?G)
  33. FENTANYL CITRATE [Suspect]
     Active Substance: FENTANYL CITRATE
     Indication: Spinal muscular atrophy
     Dosage: 12 DOSAGE FORM, QD (STRENGTH: 400 MICROGRAMS)
  34. FENTANYL CITRATE [Suspect]
     Active Substance: FENTANYL CITRATE
     Indication: Sacral pain
  35. FENTANYL CITRATE [Suspect]
     Active Substance: FENTANYL CITRATE
     Dosage: 4800 MICROGRAM, QD
  36. FENTANYL CITRATE [Suspect]
     Active Substance: FENTANYL CITRATE
     Dosage: 1 DOSAGE FORM, QD
  37. FENTANYL CITRATE [Suspect]
     Active Substance: FENTANYL CITRATE
     Dosage: 400 MICROGRAM, TWO TIMES A DAY
  38. FENTANYL CITRATE [Suspect]
     Active Substance: FENTANYL CITRATE
  39. OXYCODONE [Suspect]
     Active Substance: OXYCODONE
     Indication: Back pain
  40. OXYCODONE [Suspect]
     Active Substance: OXYCODONE
     Indication: Pain
  41. OXYCODONE [Suspect]
     Active Substance: OXYCODONE
     Indication: Myalgia
  42. MORPHINE [Suspect]
     Active Substance: MORPHINE
     Indication: Myalgia
  43. MORPHINE [Suspect]
     Active Substance: MORPHINE
     Indication: Pain
  44. MORPHINE [Suspect]
     Active Substance: MORPHINE
     Indication: Back pain
  45. CHLORPROTHIXENE HYDROCHLORIDE [Suspect]
     Active Substance: CHLORPROTHIXENE HYDROCHLORIDE
     Indication: Mixed anxiety and depressive disorder
     Dosage: 15 MILLIGRAM, BID
  46. CHLORPROTHIXENE HYDROCHLORIDE [Suspect]
     Active Substance: CHLORPROTHIXENE HYDROCHLORIDE
     Dosage: 30 MILLIGRAM, QD
  47. FENTANYL [Suspect]
     Active Substance: FENTANYL
     Indication: Back pain
  48. FENTANYL [Suspect]
     Active Substance: FENTANYL
     Indication: Myalgia
  49. FENTANYL [Suspect]
     Active Substance: FENTANYL
  50. FENTANYL [Suspect]
     Active Substance: FENTANYL
     Indication: Sacral pain
  51. AMITRIPTYLINE [Suspect]
     Active Substance: AMITRIPTYLINE
     Indication: Product used for unknown indication
  52. TIANEPTINE SODIUM [Suspect]
     Active Substance: TIANEPTINE SODIUM
     Indication: Mixed anxiety and depressive disorder
     Dosage: 37.5 MILLIGRAM, QD (12.5 MG, TID (3/DAY))
  53. CHONDROITIN SULFATE SODIUM NOS [Suspect]
     Active Substance: CHONDROITIN SULFATE SODIUM NOS
     Indication: Product used for unknown indication
     Dosage: 1000 MILLIGRAM, QD
  54. BUPRENORPHINE [Suspect]
     Active Substance: BUPRENORPHINE
     Indication: Pain
  55. HYDROXYZINE [Suspect]
     Active Substance: HYDROXYZINE HYDROCHLORIDE
     Indication: Product used for unknown indication
     Dosage: 10 MILLIGRAM, QD
  56. CHLORPROTHIXENE [Suspect]
     Active Substance: CHLORPROTHIXENE
     Indication: Mixed anxiety and depressive disorder
     Dosage: 30 MILLIGRAM, QD (15 MG, BID (2/DAY))
  57. SERTRALINE [Concomitant]
     Active Substance: SERTRALINE HYDROCHLORIDE
     Indication: Mixed anxiety and depressive disorder
  58. QUETIAPINE [Concomitant]
     Active Substance: QUETIAPINE
     Indication: Product used for unknown indication
     Dosage: 50 MILLIGRAM, QD (1 X 2 TABLETS FOR NIGHT)
  59. QUETIAPINE [Concomitant]
     Active Substance: QUETIAPINE
     Dosage: 25 MILLIGRAM, QD (NIGHT)
  60. QUETIAPINE [Concomitant]
     Active Substance: QUETIAPINE
  61. LORAZEPAM [Concomitant]
     Active Substance: LORAZEPAM
     Indication: Mixed anxiety and depressive disorder
  62. HYDROXYZINE [Concomitant]
     Active Substance: HYDROXYZINE HYDROCHLORIDE
     Indication: Product used for unknown indication
     Dosage: 10 MILLIGRAM, QD (FOR THE NIGHT)
  63. HYDROXYZINE [Concomitant]
     Active Substance: HYDROXYZINE HYDROCHLORIDE
  64. TIANEPTINE SODIUM [Concomitant]
     Active Substance: TIANEPTINE SODIUM
     Indication: Mixed anxiety and depressive disorder
  65. TIANEPTINE SODIUM [Concomitant]
     Active Substance: TIANEPTINE SODIUM
     Dosage: 12.5 MILLIGRAM, Q8H
  66. TIANEPTINE SODIUM [Concomitant]
     Active Substance: TIANEPTINE SODIUM
     Dosage: 37.5 MILLIGRAM, QD (12.5 MG, 3X PER DAY)
  67. BROMHEXINE HYDROCHLORIDE [Concomitant]
     Active Substance: BROMHEXINE HYDROCHLORIDE
     Indication: Product used for unknown indication
     Dosage: 1 DOSAGE FORM, QD
  68. Travisco [Concomitant]
  69. INHIBACE [Concomitant]
     Active Substance: CILAZAPRIL ANHYDROUS
  70. INHIBACE [Concomitant]
     Active Substance: CILAZAPRIL ANHYDROUS
     Dosage: 10 MILLIGRAM, QD
  71. Mizodin [Concomitant]
     Indication: Product used for unknown indication
  72. Mizodin [Concomitant]
     Dosage: 500 MILLIGRAM, QD (250 MG, 2X PER DAY)
  73. Mizodin [Concomitant]
     Dosage: 250 MILLIGRAM, QD (250 MG (2 X HALF TABLET))
  74. Mizodin [Concomitant]
     Dosage: 1 MILLIGRAM, QD (0.5 MILLIGRAM, TWO TIMES A DAY)
  75. CAPTOPRIL [Concomitant]
     Active Substance: CAPTOPRIL
     Indication: Product used for unknown indication
  76. CAPTOPRIL [Concomitant]
     Active Substance: CAPTOPRIL
  77. POTASSIUM CHLORIDE [Concomitant]
     Active Substance: POTASSIUM CHLORIDE
     Indication: Product used for unknown indication
  78. POTASSIUM CHLORIDE [Concomitant]
     Active Substance: POTASSIUM CHLORIDE
     Dosage: 1 DOSAGE FORM, QD
  79. PIRACETAM [Concomitant]
     Active Substance: PIRACETAM
  80. PIRACETAM [Concomitant]
     Active Substance: PIRACETAM
     Dosage: 2400 MILLIGRAM, QD
  81. ETOFENAMATE [Concomitant]
     Active Substance: ETOFENAMATE
     Indication: Product used for unknown indication
  82. Urosept [Concomitant]
  83. Urosept [Concomitant]
     Dosage: 2 DOSAGE FORM, QD
  84. UNSPECIFIED INGREDIENT [Concomitant]
     Active Substance: UNSPECIFIED INGREDIENT
     Indication: Product used for unknown indication
  85. UNSPECIFIED INGREDIENT [Concomitant]
     Active Substance: UNSPECIFIED INGREDIENT
     Dosage: 50 MILLIGRAM, QD
  86. VITAMIN D3 [Concomitant]
     Active Substance: CHOLECALCIFEROL
  87. VITAMIN D3 [Concomitant]
     Active Substance: CHOLECALCIFEROL
     Dosage: 1 DOSAGE FORM, QD
  88. VITAMIN D3 [Concomitant]
     Active Substance: CHOLECALCIFEROL
     Dosage: 4000 INTERNATIONAL UNIT, QD
  89. ALLOPURINOL [Concomitant]
     Active Substance: ALLOPURINOL
     Indication: Product used for unknown indication
  90. ALLOPURINOL [Concomitant]
     Active Substance: ALLOPURINOL
     Dosage: 300 MILLIGRAM, QD
  91. ALLOPURINOL [Concomitant]
     Active Substance: ALLOPURINOL
     Dosage: 150 MILLIGRAM, QD
  92. ALLOPURINOL [Concomitant]
     Active Substance: ALLOPURINOL
     Dosage: 0.5 DOSAGE FORM, QD
  93. TORECAN [Concomitant]
     Active Substance: THIETHYLPERAZINE MALATE
     Indication: Product used for unknown indication
  94. TORECAN [Concomitant]
     Active Substance: THIETHYLPERAZINE MALATE
     Dosage: 6.5 MILLIGRAM, QD
  95. INDAPAMIDE [Concomitant]
     Active Substance: INDAPAMIDE
     Indication: Product used for unknown indication
  96. INDAPAMIDE [Concomitant]
     Active Substance: INDAPAMIDE
     Dosage: 1 DOSAGE FORM, QD
  97. BISOPROLOL [Concomitant]
     Active Substance: BISOPROLOL
     Indication: Product used for unknown indication
     Dosage: 2.5 MILLIGRAM, QD (1 X 1/2 TABLET)
  98. BISOPROLOL [Concomitant]
     Active Substance: BISOPROLOL
     Dosage: 5 MILLIGRAM, QD
  99. BISOPROLOL [Concomitant]
     Active Substance: BISOPROLOL
     Dosage: 0.5 DOSAGE FORM, QD
  100. NITRENDIPINE [Concomitant]
     Active Substance: NITRENDIPINE
     Indication: Product used for unknown indication
  101. NITRENDIPINE [Concomitant]
     Active Substance: NITRENDIPINE
     Dosage: 5 MILLIGRAM, QD (5 MILLIGRAM DAILY; )
  102. NITRENDIPINE [Concomitant]
     Active Substance: NITRENDIPINE
     Dosage: 0.5 DOSAGE FORM, QD
  103. Duspatalin Retard [Concomitant]
     Indication: Product used for unknown indication
  104. Duspatalin Retard [Concomitant]
     Dosage: 2 DOSAGE FORM, QD (UNK, BID (2/DAY))
  105. Ulgix laxi [Concomitant]
  106. Ulgix laxi [Concomitant]
     Dosage: 3 DOSAGE FORM, QD
  107. Lioton [Concomitant]
     Indication: Product used for unknown indication
  108. DROTAVERINE HYDROCHLORIDE [Concomitant]
     Active Substance: DROTAVERINE HYDROCHLORIDE
     Indication: Product used for unknown indication
  109. DROTAVERINE HYDROCHLORIDE [Concomitant]
     Active Substance: DROTAVERINE HYDROCHLORIDE
     Dosage: 2 DOSAGE FORM, QD
  110. Ulgix Wzdecia [Concomitant]
  111. Structum [Concomitant]
     Indication: Product used for unknown indication
  112. NITRENDIPINE [Concomitant]
     Active Substance: NITRENDIPINE
     Dosage: 10 MILLIGRAM, QD
  113. MEBEVERINE [Concomitant]
     Active Substance: MEBEVERINE
     Dosage: 2 DOSAGE FORM, QD
  114. CHOLESTEROL [Concomitant]
     Active Substance: CHOLESTEROL
     Indication: Product used for unknown indication
     Dosage: 2 DOSAGE FORM, QD
  115. CHOLESTEROL [Concomitant]
     Active Substance: CHOLESTEROL
     Dosage: (DOSE AND UNITS NOT PROVIDED), BID (2/DAY)
  116. Rennie [Concomitant]
     Dosage: 2 DOSAGE FORM, QD
  117. HEPARIN SODIUM [Concomitant]
     Active Substance: HEPARIN SODIUM
  118. PENTOXIFYLLINE [Concomitant]
     Active Substance: PENTOXIFYLLINE
     Indication: Pain
  119. LIDOCAINE [Concomitant]
     Active Substance: LIDOCAINE
     Indication: Pain
     Dosage: 18 DOSAGE FORM, QD
  120. BUPRENORPHINE [Concomitant]
     Active Substance: BUPRENORPHINE
     Indication: Product used for unknown indication
     Dosage: 35 MICROGRAM, QH
  121. TOLPERISONE [Concomitant]
     Active Substance: TOLPERISONE
     Indication: Myalgia
  122. DULOXETINE [Concomitant]
     Active Substance: DULOXETINE
     Indication: Product used for unknown indication
     Dosage: 60 MILLIGRAM, AM
  123. DULOXETINE [Concomitant]
     Active Substance: DULOXETINE
     Dosage: 30 MILLIGRAM, AM
  124. PIRACETAM [Concomitant]
     Active Substance: PIRACETAM
     Indication: Product used for unknown indication
     Dosage: 1 DOSAGE FORM, TWO TIMES A DAY
  125. Rennie [Concomitant]
     Indication: Product used for unknown indication
  126. Rennie [Concomitant]
  127. DROTAVERINE HYDROCHLORIDE [Concomitant]
     Active Substance: DROTAVERINE HYDROCHLORIDE
     Dosage: 2 DOSAGE FORM, QD (UNK, BID (2/DAY)
  128. TIANEPTINE [Concomitant]
     Active Substance: TIANEPTINE
     Indication: Product used for unknown indication

REACTIONS (24)
  - Pain [Unknown]
  - Affective disorder [Recovered/Resolved]
  - Drug intolerance [Unknown]
  - Drug ineffective [Unknown]
  - Intentional product misuse [Unknown]
  - Drug dependence [Not Recovered/Not Resolved]
  - Withdrawal syndrome [Unknown]
  - Drug tolerance decreased [Unknown]
  - Contraindicated product administered [Unknown]
  - Obstruction [Unknown]
  - Hypotension [Unknown]
  - Intentional product use issue [Unknown]
  - Constipation [Recovering/Resolving]
  - Mental disorder [Unknown]
  - Drug use disorder [Unknown]
  - Asthenia [Unknown]
  - Drug withdrawal syndrome [Unknown]
  - Product use in unapproved indication [Unknown]
  - Tremor [Unknown]
  - Hyperhidrosis [Unknown]
  - Mixed anxiety and depressive disorder [Unknown]
  - Anxiety [Recovering/Resolving]
  - Myalgia [Recovering/Resolving]
  - Chills [Recovering/Resolving]

NARRATIVE: CASE EVENT DATE: 20170101
